FAERS Safety Report 24779258 (Version 1)
Quarter: 2024Q4

REPORT INFORMATION
  Report Type: Spontaneous
  Country: US (occurrence: US)
  Receive Date: 20241226
  Receipt Date: 20241226
  Transmission Date: 20250114
  Serious: Yes (Death)
  Sender: UCB
  Company Number: US-UCBSA-2024067262

PATIENT
  Age: 71 Year
  Sex: Female

DRUGS (1)
  1. VIMPAT [Suspect]
     Active Substance: LACOSAMIDE
     Indication: Product used for unknown indication
     Dosage: 150 MILLIGRAM, 2X/DAY (BID)
     Dates: end: 202412

REACTIONS (1)
  - Death [Fatal]

NARRATIVE: CASE EVENT DATE: 20241219
